FAERS Safety Report 23527736 (Version 1)
Quarter: 2024Q1

REPORT INFORMATION
  Report Type: Spontaneous
  Country: ES (occurrence: GB)
  Receive Date: 20240215
  Receipt Date: 20240215
  Transmission Date: 20240409
  Serious: Yes (Hospitalization)
  Sender: FDA-Public Use
  Company Number: GB-Breckenridge Pharmaceutical, Inc.-2153245

PATIENT
  Age: 3 Month
  Sex: Male
  Weight: 1.4205 kg

DRUGS (4)
  1. OMEPRAZOLE [Suspect]
     Active Substance: OMEPRAZOLE
     Route: 048
  2. ABIDEC (NICOTINAMIDE; VITAMIN A PALMITATE 1,000,000 I.U. PER G; ERGOCA [Concomitant]
  3. SODIUM FEREDETATE [Concomitant]
     Active Substance: SODIUM FEREDETATE
  4. FOLIC ACID [Concomitant]
     Active Substance: FOLIC ACID

REACTIONS (4)
  - Constipation [Unknown]
  - Haematochezia [Recovered/Resolved]
  - Incorrect dose administered [Unknown]
  - Faeces discoloured [Unknown]
